FAERS Safety Report 7384836-3 (Version None)
Quarter: 2011Q1

REPORT INFORMATION
  Report Type: 
  Country: None (occurrence: None)
  Receive Date: 20110330
  Receipt Date: 20110315
  Transmission Date: 20110831
  Serious: No
  Sender: FDA-Public Use
  Company Number: TR-CTI_01335_2011

PATIENT
  Age: 37 Year
  Sex: Female
  Weight: 60 kg

DRUGS (2)
  1. FACTIVE [Suspect]
     Indication: SINUSITIS
     Route: 048
     Dates: start: 20110215, end: 20110222
  2. STABLON (TIANEPTIN) [Concomitant]
     Indication: DEPRESSION
     Dosage: DF
     Dates: start: 20110215, end: 20110222

REACTIONS (6)
  - ABDOMINAL PAIN UPPER [None]
  - VOMITING [None]
  - PALPITATIONS [None]
  - HEPATIC ENZYME INCREASED [None]
  - NAUSEA [None]
  - HEADACHE [None]
